FAERS Safety Report 16754229 (Version 1)
Quarter: 2019Q3

REPORT INFORMATION
  Report Type: Spontaneous
  Country: US (occurrence: US)
  Receive Date: 20190829
  Receipt Date: 20190829
  Transmission Date: 20191005
  Serious: No
  Sender: FDA-Public Use
  Company Number: US-STRIDES ARCOLAB LIMITED-2018SP007054

PATIENT

DRUGS (1)
  1. AMLODIPINE [Suspect]
     Active Substance: AMLODIPINE BESYLATE
     Indication: PAIN IN EXTREMITY
     Dosage: 10 MG
     Route: 065

REACTIONS (3)
  - Off label use [Unknown]
  - Palpitations [Recovered/Resolved]
  - Dizziness [Recovered/Resolved]
